FAERS Safety Report 5559138-8 (Version None)
Quarter: 2007Q4

REPORT INFORMATION
  Report Type: 
  Country: None (occurrence: None)
  Receive Date: 20071130
  Receipt Date: 20070816
  Transmission Date: 20080405
  Serious: No
  Sender: FDA-Public Use
  Company Number: US200708003649

PATIENT
  Sex: Female

DRUGS (2)
  1. BYETTA [Suspect]
  2. STARLIX [Concomitant]

REACTIONS (1)
  - BLOOD GLUCOSE DECREASED [None]
